FAERS Safety Report 13758823 (Version 1)
Quarter: 2017Q3

REPORT INFORMATION
  Report Type: Spontaneous
  Country: US (occurrence: US)
  Receive Date: 20170717
  Receipt Date: 20170717
  Transmission Date: 20171127
  Serious: Yes (Disabling)
  Sender: FDA-Public Use
  Company Number: None

PATIENT
  Age: 35 Year
  Sex: Female
  Weight: 63.45 kg

DRUGS (7)
  1. LAMICTAL [Concomitant]
     Active Substance: LAMOTRIGINE
  2. LATUDA [Suspect]
     Active Substance: LURASIDONE HYDROCHLORIDE
     Indication: BIPOLAR II DISORDER
     Dosage: ?          OTHER STRENGTH:MG;QUANTITY:30 TABLET(S);?
     Route: 048
  3. NORVASC [Concomitant]
     Active Substance: AMLODIPINE BESYLATE
  4. HYDRALAZINE [Concomitant]
     Active Substance: HYDRALAZINE HYDROCHLORIDE
  5. ZOLOFT [Concomitant]
     Active Substance: SERTRALINE HYDROCHLORIDE
  6. PROVENTALIN [Concomitant]
     Active Substance: ALBUTEROL SULFATE
  7. ALDACTONE [Concomitant]
     Active Substance: SPIRONOLACTONE

REACTIONS (2)
  - Confusional state [None]
  - Amnesia [None]

NARRATIVE: CASE EVENT DATE: 20170717
